FAERS Safety Report 5412614-0 (Version None)
Quarter: 2007Q3

REPORT INFORMATION
  Report Type: 
  Country: None (occurrence: None)
  Receive Date: 20070809
  Receipt Date: 20070730
  Transmission Date: 20080115
  Serious: Yes (Other)
  Sender: FDA-Public Use
  Company Number: CHNY2007DE02266

PATIENT
  Sex: Male
  Weight: 80 kg

DRUGS (1)
  1. NICOTINE [Suspect]
     Indication: SMOKING CESSATION THERAPY
     Dosage: 14 MG, TRANSDERMAL
     Route: 062
     Dates: start: 20070306, end: 20070306

REACTIONS (6)
  - CARDIOVASCULAR DISORDER [None]
  - HEADACHE [None]
  - HOT FLUSH [None]
  - LOSS OF CONSCIOUSNESS [None]
  - PALPITATIONS [None]
  - VISUAL DISTURBANCE [None]
